FAERS Safety Report 19940920 (Version 6)
Quarter: 2021Q4

REPORT INFORMATION
  Report Type: Spontaneous
  Country: SK (occurrence: SK)
  Receive Date: 20211011
  Receipt Date: 20211208
  Transmission Date: 20220303
  Serious: Yes (Death, Hospitalization, Other)
  Sender: FDA-Public Use
  Company Number: SK-MYLANLABS-2021M1069481

PATIENT
  Age: 56 Year
  Sex: Male

DRUGS (8)
  1. DEXAMETHASONE [Suspect]
     Active Substance: DEXAMETHASONE
     Indication: Plasma cell myeloma
     Dosage: UNK
  2. DEXAMETHASONE [Suspect]
     Active Substance: DEXAMETHASONE
     Dosage: COMBINED BORTEZOMIB, CYCLOPHOSPHAMIDE AND DEXAMETHASONE (CVD) REGIMEN
     Route: 065
     Dates: start: 2020
  3. BORTEZOMIB [Suspect]
     Active Substance: BORTEZOMIB
     Indication: Plasma cell myeloma
     Dosage: UNK
  4. BORTEZOMIB [Suspect]
     Active Substance: BORTEZOMIB
     Dosage: COMBINED BORTEZOMIB, CYCLOPHOSPHAMIDE AND DEXAMETHASONE (CVD) REGIMEN
     Route: 065
     Dates: start: 2020
  5. VELCADE [Suspect]
     Active Substance: BORTEZOMIB
     Indication: Plasma cell myeloma
     Dosage: UNK
  6. CYCLOPHOSPHAMIDE [Suspect]
     Active Substance: CYCLOPHOSPHAMIDE
     Indication: Plasma cell myeloma
     Dosage: UNK
  7. CYCLOPHOSPHAMIDE [Suspect]
     Active Substance: CYCLOPHOSPHAMIDE
     Dosage: COMBINED BORTEZOMIB, CYCLOPHOSPHAMIDE AND DEXAMETHASONE (CVD) REGIMEN
     Route: 065
     Dates: start: 2020
  8. MIDODRINE HYDROCHLORIDE [Concomitant]
     Active Substance: MIDODRINE HYDROCHLORIDE
     Indication: Amyloidosis
     Dosage: UNK

REACTIONS (24)
  - Septic shock [Fatal]
  - Gastrointestinal haemorrhage [Fatal]
  - Multiple organ dysfunction syndrome [Fatal]
  - Fungal oesophagitis [Fatal]
  - Colitis [Fatal]
  - Myelosuppression [Fatal]
  - Infection in an immunocompromised host [Fatal]
  - Oesophageal infection [Fatal]
  - Azotaemia [Fatal]
  - SARS-CoV-2 test positive [Fatal]
  - Erysipelas [Fatal]
  - Haemorrhagic infarction [Fatal]
  - Tinea cruris [Fatal]
  - Pneumonia [Fatal]
  - Pneumonia klebsiella [Unknown]
  - Systemic candida [Unknown]
  - Immunodeficiency [Unknown]
  - Diverticulum intestinal haemorrhagic [Unknown]
  - Condition aggravated [Unknown]
  - Intestinal infarction [Unknown]
  - COVID-19 [Unknown]
  - Klebsiella infection [Unknown]
  - COVID-19 pneumonia [Unknown]
  - Infection [Unknown]

NARRATIVE: CASE EVENT DATE: 20200901
